FAERS Safety Report 8313865-8 (Version None)
Quarter: 2012Q2

REPORT INFORMATION
  Report Type: 
  Country: None (occurrence: None)
  Receive Date: 20120426
  Receipt Date: 20120417
  Transmission Date: 20120825
  Serious: Yes (Other)
  Sender: FDA-Public Use
  Company Number: US-PFIZER INC-2012095370

PATIENT
  Sex: Female

DRUGS (1)
  1. PREPARATION H MAXIMUM STRENGTH [Suspect]
     Indication: PAIN
     Dosage: UNK

REACTIONS (4)
  - DRUG INEFFECTIVE [None]
  - CARDIAC DISORDER [None]
  - PAIN [None]
  - DRUG ADMINISTRATION ERROR [None]
